FAERS Safety Report 25574934 (Version 1)
Quarter: 2025Q3

REPORT INFORMATION
  Report Type: Spontaneous
  Country: US (occurrence: US)
  Receive Date: 20250718
  Receipt Date: 20250718
  Transmission Date: 20251020
  Serious: No
  Sender: SANOFI AVENTIS
  Company Number: US-SA-2025SA200848

PATIENT
  Sex: Male

DRUGS (4)
  1. DUPIXENT [Suspect]
     Active Substance: DUPILUMAB
     Indication: Anosmia
     Dosage: 300MG QOW
     Route: 058
     Dates: start: 202506
  2. ATORVASTATIN [Concomitant]
     Active Substance: ATORVASTATIN
  3. FLUTICASONE [Concomitant]
     Active Substance: FLUTICASONE
  4. TAMSULOSIN HYDROCHLORIDE [Concomitant]
     Active Substance: TAMSULOSIN HYDROCHLORIDE

REACTIONS (2)
  - Injection site discharge [Unknown]
  - Product use in unapproved indication [Unknown]
